FAERS Safety Report 5984051-1 (Version None)
Quarter: 2008Q4

REPORT INFORMATION
  Report Type: 
  Country: None (occurrence: None)
  Receive Date: 20081208
  Receipt Date: 20080808
  Transmission Date: 20090506
  Serious: Yes (Hospitalization)
  Sender: FDA-Public Use
  Company Number: US-AMGEN-QUU300525

PATIENT
  Sex: Female

DRUGS (2)
  1. ENBREL [Suspect]
     Indication: PSORIATIC ARTHROPATHY
     Route: 058
     Dates: start: 20030901
  2. REMICADE [Concomitant]
     Dates: start: 20071201, end: 20080401

REACTIONS (7)
  - BRONCHITIS [None]
  - INJECTION SITE HAEMATOMA [None]
  - JOINT RANGE OF MOTION DECREASED [None]
  - PROCEDURAL PAIN [None]
  - PRODUCTIVE COUGH [None]
  - PSORIASIS [None]
  - PSORIATIC ARTHROPATHY [None]
